FAERS Safety Report 25844371 (Version 3)
Quarter: 2025Q4

REPORT INFORMATION
  Report Type: Report from Study
  Country: CN (occurrence: CN)
  Receive Date: 20250925
  Receipt Date: 20251003
  Transmission Date: 20260118
  Serious: Yes (Other)
  Sender: JOHNSON AND JOHNSON
  Company Number: CN-JNJFOC-20250925580

PATIENT

DRUGS (2)
  1. USTEKINUMAB [Suspect]
     Active Substance: USTEKINUMAB
     Indication: Crohn^s disease
     Dosage: FREQUENCY EVERY 8 OR 12 WEEKS
     Route: 058
  2. USTEKINUMAB [Suspect]
     Active Substance: USTEKINUMAB
     Indication: Crohn^s disease
     Dosage: LOADING-DOSE INTRAVENOUS INFUSION (6 MG/KG BODY WEIGHT, OR 260 MG IF {55 KG, 390MG IF 55-80 KG, AND
     Route: 040

REACTIONS (7)
  - Abdominal infection [Unknown]
  - Intestinal obstruction [Unknown]
  - Surgery [Unknown]
  - Intestinal perforation [Unknown]
  - Drug ineffective [Unknown]
  - Infection [Unknown]
  - Adverse event [Unknown]
